FAERS Safety Report 4834735-3 (Version None)
Quarter: 2005Q4

REPORT INFORMATION
  Report Type: 
  Country: None (occurrence: None)
  Receive Date: 20051122
  Receipt Date: 20050802
  Transmission Date: 20060501
  Serious: No
  Sender: FDA-Public Use
  Company Number: US-BRISTOL-MYERS SQUIBB COMPANY-13060181

PATIENT
  Age: 80 Year
  Sex: Male

DRUGS (4)
  1. PRAVACHOL [Suspect]
     Indication: BLOOD CHOLESTEROL INCREASED
     Route: 048
  2. NORVASC [Concomitant]
  3. TOPROL-XL [Concomitant]
  4. ASPIRIN [Concomitant]

REACTIONS (1)
  - HYPERTENSION [None]
